FAERS Safety Report 4307657-4 (Version None)
Quarter: 2004Q1

REPORT INFORMATION
  Report Type: 
  Country: None (occurrence: None)
  Receive Date: 20040226
  Receipt Date: 20040213
  Transmission Date: 20041129
  Serious: Yes (Hospitalization)
  Sender: FDA-Public Use
  Company Number: HQWYE969513FEB04

PATIENT
  Age: 81 Year
  Sex: Female

DRUGS (12)
  1. BISOPROLOL (BISOPROLOL, TABLET) [Suspect]
     Indication: HYPERTENSION
     Dosage: 2.5 MG 1X PER 1 DAY, ORAL
     Route: 048
     Dates: end: 20030823
  2. BISOPROLOL (BISOPROLOL, TABLET) [Suspect]
     Indication: HYPERTENSION
     Dosage: 2.5 MG 1X PER 1 DAY, ORAL
     Route: 048
     Dates: start: 20030830
  3. DIGITOXIN TAB [Suspect]
     Indication: ATRIAL FIBRILLATION
     Dosage: 0.07 MG 1X PER 1 DAY, ORAL
     Route: 048
     Dates: end: 20030823
  4. FUROSEMIDE [Suspect]
     Indication: CARDIAC FAILURE
     Dosage: 40 MG 2X PER 1 DAY, ORAL
     Route: 048
  5. SPIRONOLACTONE ^RATIOPHARM^ (SPIRONOLACTONE, ) [Suspect]
     Indication: HYPERTENSION
     Dosage: 100 MX 2X PER 1 DAY, ORAL
     Route: 048
     Dates: start: 19900101
  6. VERAPAMIL-RATIOPHARM (VERAPAMIL, ) [Suspect]
     Indication: ATRIAL FIBRILLATION
     Dosage: 40 MX 3X PER 1 DAY, ORAL
     Route: 048
  7. ACTRAPID HUMAN (INSULIN HUMAN) [Concomitant]
  8. FERRUM HAUSMANN (FERROUS FUMARATE/SACHARATED IRON OXIDE) [Concomitant]
  9. NEXIUM [Concomitant]
  10. PROTAPHAN (INSULIN ISOPHANE, HUMAN BIOSYNTHETIC) [Concomitant]
  11. SUMMAVIT (VITAMINS NOS) [Concomitant]
  12. NEOGAMA (SULPIRIDE) [Concomitant]

REACTIONS (8)
  - ATRIAL FIBRILLATION [None]
  - BLOOD GLUCOSE INCREASED [None]
  - BLOOD PRESSURE SYSTOLIC INCREASED [None]
  - BRADYCARDIA [None]
  - CONDITION AGGRAVATED [None]
  - DRUG INTERACTION [None]
  - GENERAL PHYSICAL HEALTH DETERIORATION [None]
  - VERTIGO [None]
